FAERS Safety Report 4405484-0 (Version None)
Quarter: 2004Q3

REPORT INFORMATION
  Report Type: 
  Country: None (occurrence: None)
  Receive Date: 20040723
  Receipt Date: 20030910
  Transmission Date: 20050211
  Serious: No
  Sender: FDA-Public Use
  Company Number: US-GLAXOSMITHKLINE-A0425343A

PATIENT
  Age: 83 Year
  Sex: Female

DRUGS (6)
  1. AVANDIA [Suspect]
     Indication: ILL-DEFINED DISORDER
     Route: 048
  2. LIPITOR [Concomitant]
  3. DIOVAN [Concomitant]
  4. CARDURA [Concomitant]
  5. HCT [Concomitant]
  6. MAGNESIUM [Concomitant]

REACTIONS (3)
  - CARDIAC DISORDER [None]
  - HAEMATOCRIT ABNORMAL [None]
  - OEDEMA PERIPHERAL [None]
